FAERS Safety Report 7559905-5 (Version None)
Quarter: 2011Q2

REPORT INFORMATION
  Report Type: 
  Country: None (occurrence: None)
  Receive Date: 20110621
  Receipt Date: 20110606
  Transmission Date: 20111010
  Serious: Yes (Other)
  Sender: FDA-Public Use
  Company Number: PHEH2011US00490

PATIENT
  Sex: Female

DRUGS (2)
  1. BONIVA [Suspect]
     Dates: end: 20071201
  2. RECLAST [Suspect]
     Dates: start: 20080301

REACTIONS (5)
  - PAIN [None]
  - ANXIETY [None]
  - DISABILITY [None]
  - FEMUR FRACTURE [None]
  - INJURY [None]
